FAERS Safety Report 7091643-8 (Version None)
Quarter: 2010Q4

REPORT INFORMATION
  Report Type: 
  Country: None (occurrence: None)
  Receive Date: 20101109
  Receipt Date: 20090805
  Transmission Date: 20110411
  Serious: No
  Sender: FDA-Public Use
  Company Number: US-KINGPHARMUSA00001-K200900939

PATIENT
  Sex: Male
  Weight: 75.737 kg

DRUGS (5)
  1. FLECTOR [Suspect]
     Indication: TENDONITIS
     Dosage: 1 PATCH, PRN
     Route: 061
     Dates: start: 20090727, end: 20090814
  2. ALEVE (CAPLET) [Concomitant]
     Indication: ARTHRITIS
     Dosage: UNK
     Route: 048
  3. COUMADIN [Concomitant]
     Indication: THROMBOPHLEBITIS
     Dosage: 4 MG, QD
  4. GABAPENTIN [Concomitant]
     Indication: NEUROPATHY PERIPHERAL
     Dosage: 400 MG, TID
  5. VITAMINS [Concomitant]
     Dosage: UNK

REACTIONS (4)
  - APPLICATION SITE CELLULITIS [None]
  - APPLICATION SITE DISCOLOURATION [None]
  - APPLICATION SITE EXFOLIATION [None]
  - APPLICATION SITE PAIN [None]
